FAERS Safety Report 23763420 (Version 1)
Quarter: 2024Q2

REPORT INFORMATION
  Report Type: Report from Study
  Country: US (occurrence: None)
  Receive Date: 20240419
  Receipt Date: 20240419
  Transmission Date: 20240715
  Serious: Yes (Other)
  Sender: FDA-Public Use
  Company Number: 2024A091996

PATIENT
  Sex: Female

DRUGS (6)
  1. LYNPARZA [Suspect]
     Active Substance: OLAPARIB
     Indication: Ovarian cancer
     Route: 048
     Dates: start: 202001
  2. LYNPARZA [Suspect]
     Active Substance: OLAPARIB
     Indication: Metastases to ovary
     Route: 048
     Dates: start: 202001
  3. LYNPARZA [Suspect]
     Active Substance: OLAPARIB
     Indication: Retroperitoneal cancer
     Route: 048
     Dates: start: 202001
  4. LYNPARZA [Suspect]
     Active Substance: OLAPARIB
     Indication: Metastases to liver
     Route: 048
     Dates: start: 202001
  5. LYNPARZA [Suspect]
     Active Substance: OLAPARIB
     Indication: Cholangiocarcinoma
     Route: 048
     Dates: start: 202001
  6. LYNPARZA [Suspect]
     Active Substance: OLAPARIB
     Indication: Malignant peritoneal neoplasm
     Route: 048
     Dates: start: 202001

REACTIONS (1)
  - Localised infection [Unknown]
